FAERS Safety Report 26206797 (Version 1)
Quarter: 2025Q4

REPORT INFORMATION
  Report Type: Spontaneous
  Country: CO (occurrence: CO)
  Receive Date: 20251229
  Receipt Date: 20251229
  Transmission Date: 20260118
  Serious: Yes (Other)
  Sender: ROCHE
  Company Number: CO-002147023-NVSC2025CO184681

PATIENT
  Age: 65 Year
  Sex: Female

DRUGS (1)
  1. OMALIZUMAB [Suspect]
     Active Substance: OMALIZUMAB
     Indication: Urticaria chronic
     Dosage: UNK, QMO

REACTIONS (16)
  - Diabetes mellitus [Unknown]
  - Condition aggravated [Unknown]
  - Hypersensitivity [Unknown]
  - Pruritus [Unknown]
  - Urticaria [Unknown]
  - Eczema [Unknown]
  - Blastocystis infection [Recovered/Resolved]
  - Hypertension [Unknown]
  - Aspartate aminotransferase abnormal [Unknown]
  - Eosinophilia [Unknown]
  - Blood immunoglobulin E abnormal [Unknown]
  - Erythema [Unknown]
  - Lichenification [Unknown]
  - Skin abrasion [Unknown]
  - Skin hyperpigmentation [Unknown]
  - Dermatitis atopic [Unknown]
